FAERS Safety Report 16535927 (Version 1)
Quarter: 2019Q3

REPORT INFORMATION
  Report Type: Spontaneous
  Country: HK (occurrence: HK)
  Receive Date: 20190705
  Receipt Date: 20190705
  Transmission Date: 20191004
  Serious: Yes (Hospitalization, Other)
  Sender: FDA-Public Use
  Company Number: HK-SUN PHARMACEUTICAL INDUSTRIES LTD-2019RR-212948

PATIENT
  Age: 59 Year
  Sex: Male

DRUGS (3)
  1. CIPROFLOXACIN. [Suspect]
     Active Substance: CIPROFLOXACIN
     Indication: OTITIS MEDIA CHRONIC
     Dosage: MULTIPLE COURSES
     Route: 048
  2. OFLOXACIN. [Suspect]
     Active Substance: OFLOXACIN
     Indication: OTITIS MEDIA CHRONIC
     Dosage: UNK
     Route: 001
  3. MEROPENEM. [Suspect]
     Active Substance: MEROPENEM
     Indication: OTITIS EXTERNA
     Dosage: UNK
     Route: 065

REACTIONS (4)
  - Vascular pseudoaneurysm [Recovered/Resolved]
  - Otorrhoea [Unknown]
  - Condition aggravated [Unknown]
  - Epistaxis [Unknown]
